FAERS Safety Report 17059177 (Version 3)
Quarter: 2020Q1

REPORT INFORMATION
  Report Type: Spontaneous
  Country: US (occurrence: US)
  Receive Date: 20191121
  Receipt Date: 20200203
  Transmission Date: 20200409
  Serious: No
  Sender: FDA-Public Use
  Company Number: US-PFIZER INC-2019502564

PATIENT
  Age: 91 Year
  Sex: Female
  Weight: 63 kg

DRUGS (3)
  1. PALBOCICLIB [Suspect]
     Active Substance: PALBOCICLIB
     Indication: BREAST CANCER FEMALE
     Dosage: 75 MG, UNK
  2. PALBOCICLIB [Suspect]
     Active Substance: PALBOCICLIB
     Dosage: 3 DF, UNK; (USED 3 TABLETS)
  3. PALBOCICLIB [Suspect]
     Active Substance: PALBOCICLIB
     Indication: RASH
     Dosage: 20 MG, UNK

REACTIONS (3)
  - Loss of personal independence in daily activities [Unknown]
  - Speech disorder [Recovered/Resolved]
  - Gait disturbance [Unknown]
